FAERS Safety Report 5819248-4 (Version None)
Quarter: 2008Q3

REPORT INFORMATION
  Report Type: 
  Country: None (occurrence: None)
  Receive Date: 20080723
  Receipt Date: 20080610
  Transmission Date: 20090109
  Serious: No
  Sender: FDA-Public Use
  Company Number: US-BAYER-200825334NA

PATIENT
  Age: 68 Year
  Sex: Male

DRUGS (1)
  1. TRASYLOL [Suspect]
     Indication: VASCULAR GRAFT
     Dates: start: 20060101

REACTIONS (1)
  - THROMBOSIS [None]
